FAERS Safety Report 9040781 (Version 1)
Quarter: 2013Q1

REPORT INFORMATION
  Report Type: Spontaneous
  Country: GB (occurrence: GB)
  Receive Date: 20130129
  Receipt Date: 20130129
  Transmission Date: 20140127
  Serious: Yes (Hospitalization)
  Sender: FDA-Public Use
  Company Number: GB-JNJFOC-20130113366

PATIENT
  Age: 59 Year
  Sex: Female
  Weight: 84 kg

DRUGS (5)
  1. IBUPROFEN [Suspect]
     Indication: ABDOMINAL PAIN
     Route: 048
     Dates: start: 20130109, end: 20130109
  2. PARACETAMOL [Concomitant]
     Route: 065
  3. ASPIRIN [Concomitant]
     Route: 065
  4. ORAMORPH [Concomitant]
     Route: 065
  5. SIMVASTATIN [Concomitant]
     Route: 065

REACTIONS (7)
  - Hypersensitivity [Recovered/Resolved]
  - Pruritus [Recovered/Resolved]
  - Rash generalised [Recovered/Resolved]
  - Rash erythematous [Recovered/Resolved]
  - Paraesthesia oral [Recovered/Resolved]
  - Wheezing [Recovered/Resolved]
  - Medication error [Unknown]
